FAERS Safety Report 6548855-9 (Version None)
Quarter: 2010Q1

REPORT INFORMATION
  Report Type: 
  Country: None (occurrence: None)
  Receive Date: 20100124
  Receipt Date: 20091210
  Transmission Date: 20100710
  Serious: No
  Sender: FDA-Public Use
  Company Number: US-ALLERGAN-0917075US

PATIENT
  Sex: Female

DRUGS (1)
  1. RESTASIS [Suspect]
     Indication: DRUG USE FOR UNKNOWN INDICATION
     Dosage: UNK
     Route: 047
     Dates: start: 20091206

REACTIONS (2)
  - ABNORMAL SENSATION IN EYE [None]
  - NASAL CONGESTION [None]
